FAERS Safety Report 5702686-8 (Version None)
Quarter: 2008Q2

REPORT INFORMATION
  Report Type: 
  Country: None (occurrence: None)
  Receive Date: 20080410
  Receipt Date: 20080410
  Transmission Date: 20081010
  Serious: Yes (Hospitalization)
  Sender: FDA-Public Use
  Company Number: None

PATIENT
  Age: 62 Year
  Sex: Female
  Weight: 84.6 kg

DRUGS (1)
  1. LETROZOLE [Suspect]
     Dosage: 2.5MG DAILY PO
     Route: 048
     Dates: start: 20041221

REACTIONS (6)
  - FATIGUE [None]
  - HYDROPNEUMOTHORAX [None]
  - METASTASES TO SPINE [None]
  - PERICARDIAL EFFUSION [None]
  - PLEURAL EFFUSION [None]
  - REFUSAL OF TREATMENT BY PATIENT [None]
